FAERS Safety Report 25312632 (Version 1)
Quarter: 2025Q2

REPORT INFORMATION
  Report Type: Spontaneous
  Country: GB (occurrence: GB)
  Receive Date: 20250514
  Receipt Date: 20250514
  Transmission Date: 20250717
  Serious: Yes (Other)
  Sender: TORRENT PHARMA INC.
  Company Number: None

PATIENT
  Age: 35 Year
  Sex: Female
  Weight: 80 kg

DRUGS (1)
  1. MONTELUKAST [Suspect]
     Active Substance: MONTELUKAST
     Indication: Product used for unknown indication
     Route: 065
     Dates: start: 20250502

REACTIONS (15)
  - Primary stabbing headache [Recovering/Resolving]
  - Pain [Recovering/Resolving]
  - Agitation [Recovering/Resolving]
  - Somnolence [Unknown]
  - Anxiety [Unknown]
  - Executive dysfunction [Unknown]
  - Crying [Unknown]
  - Electric shock sensation [Unknown]
  - Neuralgia [Unknown]
  - Dyspnoea [Unknown]
  - Back pain [Unknown]
  - Haphephobia [Unknown]
  - Discomfort [Unknown]
  - Therapy cessation [Unknown]
  - Musculoskeletal stiffness [Unknown]

NARRATIVE: CASE EVENT DATE: 20250502
